FAERS Safety Report 17004473 (Version 1)
Quarter: 2019Q4

REPORT INFORMATION
  Report Type: Spontaneous
  Country: US (occurrence: US)
  Receive Date: 20191107
  Receipt Date: 20191107
  Transmission Date: 20200122
  Serious: No
  Sender: FDA-Public Use
  Company Number: US-PFIZER INC-2019475745

PATIENT
  Age: 63 Year
  Sex: Male
  Weight: 108.86 kg

DRUGS (1)
  1. SILDENAFIL CITRATE. [Suspect]
     Active Substance: SILDENAFIL CITRATE
     Indication: SEXUAL DYSFUNCTION
     Dosage: 20 MG, AS NEEDED
     Route: 048

REACTIONS (3)
  - Drug ineffective [Unknown]
  - Headache [Unknown]
  - Intentional overdose [Unknown]

NARRATIVE: CASE EVENT DATE: 2017
